FAERS Safety Report 16332763 (Version 1)
Quarter: 2019Q2

REPORT INFORMATION
  Report Type: Spontaneous
  Country: US (occurrence: US)
  Receive Date: 20190520
  Receipt Date: 20190520
  Transmission Date: 20190711
  Serious: No
  Sender: FDA-Public Use
  Company Number: US-PFIZER INC-2019214356

PATIENT
  Age: 73 Year
  Sex: Female
  Weight: 88.45 kg

DRUGS (3)
  1. CLINDAMYCIN PHOSPHATE. [Suspect]
     Active Substance: CLINDAMYCIN PHOSPHATE
     Dosage: UNK
  2. AZITHROMYCIN ANHYDROUS. [Suspect]
     Active Substance: AZITHROMYCIN ANHYDROUS
     Dosage: 250 MG, 1X/DAY (NEXT 4 DAYS )
     Route: 048
  3. AZITHROMYCIN ANHYDROUS. [Suspect]
     Active Substance: AZITHROMYCIN ANHYDROUS
     Dosage: 500 MG, 1X/DAY, (TWO 250MG TABLETS, FIRST DAY)
     Route: 048

REACTIONS (1)
  - Drug ineffective [Unknown]
